FAERS Safety Report 9203310 (Version 2)
Quarter: 2013Q2

REPORT INFORMATION
  Report Type: Spontaneous
  Country: JP (occurrence: JP)
  Receive Date: 20130402
  Receipt Date: 20130409
  Transmission Date: 20140414
  Serious: Yes (Death)
  Sender: FDA-Public Use
  Company Number: JP-JNJFOC-20130400070

PATIENT
  Age: 8 Decade
  Sex: Male

DRUGS (1)
  1. ITRIZOLE [Suspect]
     Indication: FUNGAL INFECTION
     Route: 041

REACTIONS (1)
  - Condition aggravated [Fatal]
